FAERS Safety Report 18180841 (Version 2)
Quarter: 2020Q3

REPORT INFORMATION
  Report Type: Spontaneous
  Country: CN (occurrence: CN)
  Receive Date: 20200821
  Receipt Date: 20200824
  Transmission Date: 20201103
  Serious: Yes (Other)
  Sender: FDA-Public Use
  Company Number: CN-BAYER-2020-173181

PATIENT
  Age: 54 Year
  Sex: Male

DRUGS (2)
  1. STIVARGA [Suspect]
     Active Substance: REGORAFENIB
     Indication: HEPATIC CANCER
     Dosage: UNK
     Route: 048
     Dates: start: 201705
  2. NEXAVAR [Suspect]
     Active Substance: SORAFENIB
     Indication: HEPATIC CANCER
     Dosage: UNK
     Route: 048
     Dates: start: 201703, end: 201705

REACTIONS (7)
  - Metastases to lung [Recovered/Resolved]
  - Skin exfoliation [None]
  - Hepatic cancer [Recovering/Resolving]
  - Diarrhoea [None]
  - Alopecia [None]
  - Skin exfoliation [None]
  - Diarrhoea [None]

NARRATIVE: CASE EVENT DATE: 201703
